FAERS Safety Report 7434887-5 (Version None)
Quarter: 2011Q2

REPORT INFORMATION
  Report Type: 
  Country: None (occurrence: None)
  Receive Date: 20110415
  Receipt Date: 20110405
  Transmission Date: 20111010
  Serious: Yes (Hospitalization)
  Sender: FDA-Public Use
  Company Number: 1000020067

PATIENT
  Age: 66 Year
  Sex: Female

DRUGS (4)
  1. NORTEM (TEMAZEPAM) (TABLETS) (TEMAZEPAM) [Concomitant]
  2. LEXAPRO [Suspect]
     Indication: ANXIETY
     Dosage: 10 MG (10 MG,1 IN 1 D),ORAL
     Route: 048
     Dates: start: 20110215, end: 20110302
  3. LEXAPRO [Suspect]
     Indication: DEPRESSION
     Dosage: 10 MG (10 MG,1 IN 1 D),ORAL
     Route: 048
     Dates: start: 20110215, end: 20110302
  4. XANAX (ALPRAZOLAM) (TABLETS) (ALPRAZOLAM) [Concomitant]

REACTIONS (4)
  - COMMUNICATION DISORDER [None]
  - UNRESPONSIVE TO STIMULI [None]
  - CONVULSION [None]
  - HYPONATRAEMIA [None]
